FAERS Safety Report 8221242-3 (Version None)
Quarter: 2012Q1

REPORT INFORMATION
  Report Type: 
  Country: None (occurrence: None)
  Receive Date: 20120316
  Receipt Date: 20120302
  Transmission Date: 20120608
  Serious: Yes (Hospitalization)
  Sender: FDA-Public Use
  Company Number: JPI-P-020161

PATIENT
  Age: 86 Year
  Sex: Female

DRUGS (2)
  1. XYREM [Suspect]
     Indication: INSOMNIA
     Dosage: 6;7.5 GM (3;3.75  GM, 2 IN 1 D), ORAL
     Route: 048
     Dates: start: 20080212
  2. XYREM [Suspect]
     Indication: INSOMNIA
     Dosage: 6;7.5 GM (3;3.75  GM, 2 IN 1 D), ORAL
     Route: 048
     Dates: start: 20080512

REACTIONS (15)
  - DEEP VEIN THROMBOSIS [None]
  - URINE OUTPUT INCREASED [None]
  - SEPSIS [None]
  - BURSITIS [None]
  - WEIGHT DECREASED [None]
  - URINARY TRACT INFECTION [None]
  - POLLAKIURIA [None]
  - ENURESIS [None]
  - OEDEMA PERIPHERAL [None]
  - DRUG INEFFECTIVE [None]
  - INCORRECT DOSE ADMINISTERED [None]
  - SWELLING FACE [None]
  - VIRAL INFECTION [None]
  - THERAPEUTIC RESPONSE DECREASED [None]
  - HERNIA [None]
